FAERS Safety Report 17577410 (Version 1)
Quarter: 2020Q1

REPORT INFORMATION
  Report Type: Report from Study
  Country: US (occurrence: US)
  Receive Date: 20200324
  Receipt Date: 20200324
  Transmission Date: 20200409
  Serious: No
  Sender: FDA-Public Use
  Company Number: US-IPSEN BIOPHARMACEUTICALS, INC.-2020-05878

PATIENT
  Age: 64 Year
  Sex: Female

DRUGS (1)
  1. DYSPORT [Suspect]
     Active Substance: ABOBOTULINUMTOXINA
     Indication: TORTICOLLIS
     Dosage: 500 IU
     Route: 030

REACTIONS (7)
  - Fatigue [Unknown]
  - Muscle disorder [Unknown]
  - Depression [Unknown]
  - Muscular weakness [Unknown]
  - Back pain [Unknown]
  - Eyelid ptosis [Unknown]
  - Product dose omission [Unknown]

NARRATIVE: CASE EVENT DATE: 20200318
